FAERS Safety Report 8549342 (Version 2)
Quarter: 2013Q2

REPORT INFORMATION
  Report Type: Spontaneous
  Country: JP (occurrence: JP)
  Receive Date: 20120507
  Receipt Date: 20130529
  Transmission Date: 20140414
  Serious: Yes (Other)
  Sender: FDA-Public Use
  Company Number: JP-ROCHE-1056556

PATIENT
  Age: 70 Year
  Sex: Male
  Weight: 62 kg

DRUGS (7)
  1. AVASTIN [Suspect]
     Indication: COLON CANCER METASTATIC
     Route: 041
     Dates: start: 20120321, end: 20120321
  2. XELODA [Suspect]
     Indication: COLON CANCER METASTATIC
     Route: 048
     Dates: start: 20120321, end: 20120322
  3. ELPLAT [Concomitant]
     Indication: COLON CANCER METASTATIC
     Route: 041
     Dates: start: 20120321, end: 20120321
  4. PRIMPERAN (METOCLOPRAMIDE) [Concomitant]
     Route: 048
     Dates: start: 20120321, end: 20120328
  5. INDISETRON HYDROCHLORIDE [Concomitant]
     Route: 048
     Dates: start: 20120321, end: 20120323
  6. EMEND [Concomitant]
     Route: 048
     Dates: start: 20120321, end: 20120323
  7. CADUET [Concomitant]
     Route: 048
     Dates: start: 20120321, end: 20120328

REACTIONS (1)
  - Cerebellar infarction [Recovering/Resolving]
